FAERS Safety Report 9492374 (Version 1)
Quarter: 2013Q3

REPORT INFORMATION
  Report Type: Spontaneous
  Country: SE (occurrence: SE)
  Receive Date: 20130830
  Receipt Date: 20130830
  Transmission Date: 20140515
  Serious: Yes (Death, Other)
  Sender: FDA-Public Use
  Company Number: SE-WATSON-2013-15704

PATIENT
  Age: 83 Year
  Sex: Male

DRUGS (1)
  1. METFORMIN (UNKNOWN) [Suspect]
     Indication: PRODUCT USED FOR UNKNOWN INDICATION
     Dosage: 500 MG, UNKNOWN
     Route: 065

REACTIONS (7)
  - Lactic acidosis [Fatal]
  - Dyspnoea [Fatal]
  - Tachycardia [Fatal]
  - Fatigue [Fatal]
  - Weight decreased [Fatal]
  - Decreased appetite [Fatal]
  - Feeling cold [Fatal]
